FAERS Safety Report 5401146-1 (Version None)
Quarter: 2007Q3

REPORT INFORMATION
  Report Type: 
  Country: None (occurrence: None)
  Receive Date: 20070726
  Receipt Date: 20070628
  Transmission Date: 20080115
  Serious: Yes (Hospitalization)
  Sender: FDA-Public Use
  Company Number: 5382

PATIENT
  Age: 39 Year
  Sex: Female

DRUGS (10)
  1. METFORMIN (METFORMIN), TABLETS [Suspect]
     Indication: DIABETES MELLITUS
     Dosage: 2000 MG, ORAL
     Route: 048
     Dates: start: 20060911, end: 20070501
  2. METFORMIN (METFORMIN), TABLETS [Suspect]
     Indication: DIABETES MELLITUS
     Dosage: 2000 MG, ORAL
     Route: 048
     Dates: start: 20070503
  3. BLINDED LARAGLUTIDE [Suspect]
     Indication: DIABETES MELLITUS
     Dates: start: 20061030, end: 20070501
  4. BLINDED LARAGLUTIDE [Suspect]
     Indication: DIABETES MELLITUS
     Dates: start: 20070503
  5. AVANDIA [Suspect]
     Indication: DIABETES MELLITUS
     Dosage: 16 MG (8 MG, 2 IN 1 D); 2 MG(2 MG, 1 IN 1 D)
     Dates: start: 20060911, end: 20070501
  6. AVANDIA [Suspect]
     Indication: DIABETES MELLITUS
     Dosage: 16 MG (8 MG, 2 IN 1 D); 2 MG(2 MG, 1 IN 1 D)
     Dates: start: 20070502, end: 20070502
  7. AVANDIA [Suspect]
     Indication: DIABETES MELLITUS
     Dosage: 16 MG (8 MG, 2 IN 1 D); 2 MG(2 MG, 1 IN 1 D)
     Dates: start: 20070503
  8. ASPIRIN [Concomitant]
  9. ACETAMINOPHEN [Concomitant]
  10. PHENERGAN [Concomitant]

REACTIONS (3)
  - CHEST PAIN [None]
  - HYPERHIDROSIS [None]
  - NAUSEA [None]
